FAERS Safety Report 8518420-2 (Version None)
Quarter: 2012Q3

REPORT INFORMATION
  Report Type: 
  Country: None (occurrence: None)
  Receive Date: 20120718
  Receipt Date: 20120510
  Transmission Date: 20120928
  Serious: No
  Sender: FDA-Public Use
  Company Number: US-BRISTOL-MYERS SQUIBB COMPANY-16405359

PATIENT
  Sex: Female

DRUGS (5)
  1. AMLODIPINE [Concomitant]
  2. HEPARIN SODIUM [Suspect]
     Indication: PULMONARY EMBOLISM
     Route: 041
     Dates: start: 20120115
  3. TOPROL-XL [Concomitant]
     Dosage: TOPROL XL
  4. HYDROCHLOROTHIAZIDE [Concomitant]
  5. COUMADIN [Suspect]
     Indication: PULMONARY EMBOLISM
     Dosage: CURRENT DOSE:7.5MG TABS
     Dates: start: 20120115

REACTIONS (1)
  - INTERNATIONAL NORMALISED RATIO FLUCTUATION [None]
